FAERS Safety Report 10551098 (Version 1)
Quarter: 2014Q4

REPORT INFORMATION
  Report Type: Spontaneous
  Country: US (occurrence: None)
  Receive Date: 20141028
  Receipt Date: 20141028
  Transmission Date: 20150529
  Serious: Yes (Disabling, Other)
  Sender: FDA-Public Use
  Company Number: None

PATIENT
  Age: 50 Year
  Sex: Female
  Weight: 58.97 kg

DRUGS (1)
  1. PHENERGAN [Suspect]
     Active Substance: PROMETHAZINE HYDROCHLORIDE
     Indication: NAUSEA
     Dosage: HOSPITAL USE FOUR TIMES DAILY INTO A VEIN
     Route: 042
     Dates: start: 20050628, end: 20050630

REACTIONS (10)
  - Hyperhidrosis [None]
  - Soft tissue injury [None]
  - Infusion related reaction [None]
  - Angiopathy [None]
  - Nerve injury [None]
  - Infusion site extravasation [None]
  - Carpal tunnel syndrome [None]
  - Scar [None]
  - Burning sensation [None]
  - Thrombosis [None]

NARRATIVE: CASE EVENT DATE: 20050628
